FAERS Safety Report 7356784-6 (Version None)
Quarter: 2011Q1

REPORT INFORMATION
  Report Type: 
  Country: None (occurrence: None)
  Receive Date: 20110316
  Receipt Date: 20110308
  Transmission Date: 20110831
  Serious: Yes (Death)
  Sender: FDA-Public Use
  Company Number: CN-BAYER-2011-018971

PATIENT
  Sex: Male

DRUGS (9)
  1. ULTRAVIST 150 [Suspect]
     Indication: ARTERIOGRAM CORONARY
     Dosage: UNK
     Dates: start: 20110228, end: 20110228
  2. METOPROLOL TARTRATE [Concomitant]
     Dosage: 12.5 MG, BID
     Dates: start: 20110222
  3. FELODIPINE [Concomitant]
     Dosage: 5 MG, QD
     Dates: start: 20110222
  4. ASPIRIN [Concomitant]
     Dosage: 300 MG, QD
     Dates: start: 20110222
  5. ISOSORBIDE MONONITRATE [Concomitant]
     Dosage: 15 MG, QD
     Dates: start: 20110222
  6. DILTIAZEM [Concomitant]
     Dosage: 90 MG, QD
     Dates: start: 20110222
  7. CLOPIDOGREL [Suspect]
     Dosage: 75 MG, QD
     Dates: start: 20110222
  8. ATORVASTATIN [Concomitant]
     Dosage: 20 MG, QD
     Dates: start: 20110222
  9. ESOMEPRAZOLE MAGNESIUM [Concomitant]
     Dosage: 20 MG, QD
     Dates: start: 20110222

REACTIONS (5)
  - ANAPHYLACTIC SHOCK [None]
  - ACUTE PULMONARY OEDEMA [None]
  - MULTI-ORGAN FAILURE [None]
  - BLOOD PRESSURE FLUCTUATION [None]
  - CORONARY ARTERY DISEASE [None]
